FAERS Safety Report 5775832-8 (Version None)
Quarter: 2008Q2

REPORT INFORMATION
  Report Type: 
  Country: None (occurrence: None)
  Receive Date: 20080617
  Receipt Date: 20080609
  Transmission Date: 20081010
  Serious: Yes (Other)
  Sender: FDA-Public Use
  Company Number: JP-PFIZER INC-2008033893

PATIENT
  Age: 85 Year
  Sex: Male

DRUGS (2)
  1. ZOLOFT [Suspect]
     Indication: DEPRESSION
     Route: 048
  2. ARICEPT [Concomitant]
     Route: 048

REACTIONS (8)
  - AGITATION [None]
  - DECREASED ACTIVITY [None]
  - DIET REFUSAL [None]
  - HALLUCINATION, AUDITORY [None]
  - MUSCLE TWITCHING [None]
  - NEUROLEPTIC MALIGNANT SYNDROME [None]
  - RESTLESSNESS [None]
  - SEROTONIN SYNDROME [None]
